FAERS Safety Report 17209720 (Version 1)
Quarter: 2019Q4

REPORT INFORMATION
  Report Type: Spontaneous
  Country: US (occurrence: US)
  Receive Date: 20191227
  Receipt Date: 20191227
  Transmission Date: 20200122
  Serious: No
  Sender: FDA-Public Use
  Company Number: US-SA-2019SA355362

PATIENT
  Age: 32 Year
  Sex: Female

DRUGS (1)
  1. ENOXAPARIN SODIUM - WINTHROP [Suspect]
     Active Substance: ENOXAPARIN SODIUM
     Dosage: 40 MG, BID
     Dates: start: 201907

REACTIONS (2)
  - Product storage error [Unknown]
  - Exposure during pregnancy [Unknown]

NARRATIVE: CASE EVENT DATE: 20191219
